FAERS Safety Report 23672475 (Version 8)
Quarter: 2024Q2

REPORT INFORMATION
  Report Type: Spontaneous
  Country: US (occurrence: US)
  Receive Date: 20240326
  Receipt Date: 20240502
  Transmission Date: 20240716
  Serious: No
  Sender: FDA-Public Use
  Company Number: US-PFIZER INC-202400059664

PATIENT
  Age: 14 Year
  Sex: Male
  Weight: 40.816 kg

DRUGS (2)
  1. GENOTROPIN [Suspect]
     Active Substance: SOMATROPIN
     Indication: Growth hormone deficiency
     Dosage: 1.6 MG, 1X/DAY
     Dates: start: 20240308
  2. GENOTROPIN [Suspect]
     Active Substance: SOMATROPIN
     Dosage: 1.6 MG
     Dates: start: 20240307

REACTIONS (7)
  - Incorrect dose administered by device [Unknown]
  - Drug dose omission by device [Not Recovered/Not Resolved]
  - Device use error [Unknown]
  - Liquid product physical issue [Unknown]
  - Device leakage [Unknown]
  - Device information output issue [Unknown]
  - Device delivery system issue [Unknown]

NARRATIVE: CASE EVENT DATE: 20240316
